FAERS Safety Report 5504214-9 (Version None)
Quarter: 2007Q4

REPORT INFORMATION
  Report Type: 
  Country: None (occurrence: None)
  Receive Date: 20071101
  Receipt Date: 20071024
  Transmission Date: 20080405
  Serious: Yes (Hospitalization)
  Sender: FDA-Public Use
  Company Number: US-ELI_LILLY_AND_COMPANY-US200710004043

PATIENT
  Sex: Female

DRUGS (6)
  1. FORTEO [Suspect]
     Dosage: UNK, UNK
     Dates: start: 20070101
  2. FORTEO [Suspect]
     Dates: start: 20070606
  3. METHOTREXATE [Concomitant]
  4. PREDNISONE [Concomitant]
  5. CALCIUM [Concomitant]
  6. VITAMINS NOS [Concomitant]

REACTIONS (4)
  - ABDOMINAL STRANGULATED HERNIA [None]
  - EATING DISORDER [None]
  - FOOT FRACTURE [None]
  - GAIT DISTURBANCE [None]
